FAERS Safety Report 16446403 (Version 1)
Quarter: 2019Q2

REPORT INFORMATION
  Report Type: Spontaneous
  Country: BR (occurrence: BR)
  Receive Date: 20190618
  Receipt Date: 20190618
  Transmission Date: 20190711
  Serious: Yes (Hospitalization)
  Sender: FDA-Public Use
  Company Number: BR-B.I. PHARMACEUTICALS,INC./RIDGEFIELD-2019-MI-000489

PATIENT
  Age: 78 Year
  Sex: Male

DRUGS (8)
  1. SPIRIVA RESPIMAT [Suspect]
     Active Substance: TIOTROPIUM BROMIDE
     Route: 055
     Dates: start: 20190612
  2. CARVEDILOL. [Concomitant]
     Active Substance: CARVEDILOL
     Route: 048
     Dates: start: 201906
  3. ENALAPRIL [Concomitant]
     Active Substance: ENALAPRIL
     Indication: HYPERTENSION
     Dosage: ENALAPRIL 10MG 1 TABLET TWICE DAILY
     Route: 048
     Dates: start: 2018, end: 201906
  4. CARVEDILOL. [Concomitant]
     Active Substance: CARVEDILOL
     Indication: CARDIAC DISORDER
     Dosage: CARVEDILOL 12MG 1 TABLET EVERY 12 HOURS
     Route: 048
     Dates: start: 2018
  5. SPIRIVA RESPIMAT [Suspect]
     Active Substance: TIOTROPIUM BROMIDE
     Indication: EMPHYSEMA
     Dosage: SPIRIVA 2.5MCG 1 PUFF EVERY 8 HRS
     Route: 055
     Dates: start: 201905, end: 20190608
  6. SPIRIVA RESPIMAT [Suspect]
     Active Substance: TIOTROPIUM BROMIDE
     Dosage: SPIRIVA 2.5MCG 1 PUFF EVERY 8 HOURS
     Route: 055
     Dates: start: 20190609
  7. LOSARTAN. [Concomitant]
     Active Substance: LOSARTAN
     Indication: PRODUCT USED FOR UNKNOWN INDICATION
     Route: 065
  8. BUDESONIDA [Concomitant]
     Indication: LUNG DISORDER
     Dosage: BUDESONIDA 400MG 1 CAPSULE TWICE DAILY
     Route: 048
     Dates: start: 2018

REACTIONS (4)
  - Extra dose administered [Recovered/Resolved]
  - Muscular weakness [Recovered/Resolved]
  - Fall [Recovered/Resolved]
  - Dyspnoea [Recovered/Resolved]

NARRATIVE: CASE EVENT DATE: 20190605
